FAERS Safety Report 22216965 (Version 1)
Quarter: 2023Q2

REPORT INFORMATION
  Report Type: Spontaneous
  Country: US (occurrence: US)
  Receive Date: 20230417
  Receipt Date: 20230417
  Transmission Date: 20230721
  Serious: No
  Sender: FDA-Public Use
  Company Number: US-APOTEX-2023AP004824

PATIENT
  Sex: Female

DRUGS (2)
  1. MOMETASONE FUROATE [Suspect]
     Active Substance: MOMETASONE FUROATE
     Indication: Ear disorder
     Dosage: 2 DOSAGE FORM, BID
     Route: 045
  2. MOMETASONE FUROATE [Suspect]
     Active Substance: MOMETASONE FUROATE
     Dosage: UNK
     Route: 065

REACTIONS (4)
  - Product delivery mechanism issue [Unknown]
  - Product dose omission issue [Unknown]
  - Product use issue [Unknown]
  - Device defective [Unknown]
